FAERS Safety Report 13414650 (Version 1)
Quarter: 2017Q2

REPORT INFORMATION
  Report Type: Spontaneous
  Country: FR (occurrence: FR)
  Receive Date: 20170407
  Receipt Date: 20170407
  Transmission Date: 20170830
  Serious: Yes (Other)
  Sender: FDA-Public Use
  Company Number: FR-GLAXOSMITHKLINE-FR2017GSK046736

PATIENT
  Age: 39 Year
  Sex: Female

DRUGS (1)
  1. LAMICTAL [Suspect]
     Active Substance: LAMOTRIGINE
     Indication: AFFECTIVE DISORDER
     Dosage: 50 MG, QD
     Dates: start: 20170112

REACTIONS (5)
  - Haematochezia [Unknown]
  - Anxiety [Unknown]
  - Incorrect dose administered [Unknown]
  - Palpitations [Unknown]
  - Flatulence [Unknown]

NARRATIVE: CASE EVENT DATE: 2017
